FAERS Safety Report 7246943-5 (Version None)
Quarter: 2011Q1

REPORT INFORMATION
  Report Type: 
  Country: None (occurrence: None)
  Receive Date: 20110127
  Receipt Date: 20110114
  Transmission Date: 20110831
  Serious: Yes (Other)
  Sender: FDA-Public Use
  Company Number: US-SANOFI-AVENTIS-2010SA076204

PATIENT
  Age: 65 Year
  Weight: 88 kg

DRUGS (8)
  1. OMEPRAZOLE [Concomitant]
  2. COUMADIN [Concomitant]
  3. MULTAQ [Suspect]
     Indication: ATRIAL FIBRILLATION
     Route: 048
     Dates: start: 20101206, end: 20101207
  4. BETAPACE [Concomitant]
     Indication: ATRIAL FIBRILLATION
     Route: 048
     Dates: start: 20101204, end: 20101208
  5. CIPRO [Concomitant]
     Route: 048
     Dates: start: 20101203, end: 20101205
  6. GLUCOPHAGE [Concomitant]
     Route: 048
  7. BENADRYL [Concomitant]
     Dates: start: 20101206, end: 20101209
  8. GLYBURIDE [Concomitant]
     Route: 048

REACTIONS (3)
  - OFF LABEL USE [None]
  - TORSADE DE POINTES [None]
  - ELECTROCARDIOGRAM QT INTERVAL ABNORMAL [None]
